FAERS Safety Report 8999263 (Version 1)
Quarter: 2013Q1

REPORT INFORMATION
  Report Type: Report from Study
  Country: AT (occurrence: AT)
  Receive Date: 20130103
  Receipt Date: 20130103
  Transmission Date: 20140127
  Serious: Yes (Hospitalization, Other)
  Sender: FDA-Public Use
  Company Number: AT-ASTELLAS-2012EU011393

PATIENT
  Age: 60 Year
  Sex: Male
  Weight: 81 kg

DRUGS (7)
  1. TACROLIMUS CAPSULES [Suspect]
     Indication: TRANSPLANT
     Dosage: 9 MG, UID/QD
     Route: 048
     Dates: start: 20121101, end: 20121116
  2. TACROLIMUS CAPSULES [Suspect]
     Dosage: 10 MG, UID/QD
     Route: 048
     Dates: start: 20121117, end: 20121127
  3. TACROLIMUS CAPSULES [Suspect]
     Dosage: 5 MG, UID/QD
     Route: 048
     Dates: start: 20121128, end: 20121128
  4. TACROLIMUS CAPSULES [Suspect]
     Dosage: 2 MG, UID/QD
     Route: 048
     Dates: start: 20121129, end: 20121129
  5. TACROLIMUS CAPSULES [Suspect]
     Dosage: 4 MG, UID/QD
     Route: 048
     Dates: start: 20121130, end: 20121130
  6. MYFORTIC [Concomitant]
     Dosage: UNK
     Route: 065
     Dates: start: 20111216
  7. ACECOMB [Concomitant]
     Dosage: UNK
     Route: 065
     Dates: start: 20111229

REACTIONS (1)
  - General physical health deterioration [Recovering/Resolving]
